FAERS Safety Report 6101160-7 (Version None)
Quarter: 2009Q1

REPORT INFORMATION
  Report Type: 
  Country: None (occurrence: None)
  Receive Date: 20090304
  Receipt Date: 20090224
  Transmission Date: 20090719
  Serious: Yes (Hospitalization)
  Sender: FDA-Public Use
  Company Number: US-ELI_LILLY_AND_COMPANY-US200902007120

PATIENT
  Sex: Female

DRUGS (5)
  1. HUMULIN R [Suspect]
     Indication: GESTATIONAL DIABETES
  2. HUMULIN N [Suspect]
     Indication: GESTATIONAL DIABETES
  3. ZOLOFT [Concomitant]
  4. PROTONIX [Concomitant]
  5. LORTAB [Concomitant]

REACTIONS (3)
  - BLOOD GLUCOSE INCREASED [None]
  - DRUG EXPOSURE DURING PREGNANCY [None]
  - RENAL FAILURE [None]
